FAERS Safety Report 8414622-4 (Version None)
Quarter: 2012Q2

REPORT INFORMATION
  Report Type: 
  Country: None (occurrence: None)
  Receive Date: 20120605
  Receipt Date: 20120529
  Transmission Date: 20120825
  Serious: Yes (Hospitalization)
  Sender: FDA-Public Use
  Company Number: NL-B.I. PHARMACEUTICALS,INC./RIDGEFIELD-2012-RD-00231EU

PATIENT
  Sex: Female
  Weight: 53.8 kg

DRUGS (14)
  1. ASCAL [Concomitant]
     Indication: ATHEROSCLEROSIS PROPHYLAXIS
  2. METFORMIN HCL [Suspect]
     Indication: TYPE 2 DIABETES MELLITUS
     Dosage: 1500 MG
     Route: 048
     Dates: start: 20061002, end: 20120410
  3. PERINDOPRIL ERBUMINE [Concomitant]
     Indication: HYPERTENSION
  4. RANIBIZUMAB [Concomitant]
     Indication: MACULAR OEDEMA
  5. METFORMIN HCL [Suspect]
     Dosage: 1000 MG
     Route: 048
     Dates: start: 20120410, end: 20120502
  6. STRUMAZOL [Concomitant]
     Indication: HYPERTHYROIDISM
     Dates: start: 20081013, end: 20110506
  7. ATORVASTATIN CALCIUM [Concomitant]
     Indication: ATHEROSCLEROSIS PROPHYLAXIS
  8. NEXIUM [Concomitant]
     Indication: GASTRITIS
     Dosage: 20 MG
     Route: 048
     Dates: start: 20111229, end: 20120502
  9. CHLOORAMPENICOL [Concomitant]
     Indication: MACULAR OEDEMA
  10. TRIAL PROCEDURE [Suspect]
     Indication: TYPE 2 DIABETES MELLITUS
  11. INDAPAMIDE [Concomitant]
     Indication: HYPERTENSION
     Dates: start: 20120213
  12. ACTOS [Concomitant]
     Indication: TYPE 2 DIABETES MELLITUS
     Dosage: 45 MG
     Route: 048
     Dates: start: 20120217, end: 20120508
  13. BI 1356 [Suspect]
     Indication: TYPE 2 DIABETES MELLITUS
     Dosage: 5 MG
     Dates: start: 20111027, end: 20120508
  14. FLU VACCINATION [Concomitant]
     Indication: ANTIVIRAL PROPHYLAXIS
     Dates: start: 20111104, end: 20111104

REACTIONS (3)
  - ANAEMIA [None]
  - HYPERGLYCAEMIA [None]
  - DIARRHOEA [None]
